FAERS Safety Report 5594137-1 (Version None)
Quarter: 2008Q1

REPORT INFORMATION
  Report Type: 
  Country: None (occurrence: None)
  Receive Date: 20080115
  Receipt Date: 20080109
  Transmission Date: 20080703
  Serious: Yes (Hospitalization)
  Sender: FDA-Public Use
  Company Number: 2007SP022419

PATIENT
  Age: 45 Year
  Sex: Female
  Weight: 99.7913 kg

DRUGS (3)
  1. PEG-INTRON [Suspect]
     Indication: HEPATITIS C
     Dosage: SC
     Route: 058
     Dates: start: 20070914, end: 20071109
  2. RIBAVIRIN [Suspect]
     Indication: HEPATITIS C
     Dosage: PO
     Route: 048
     Dates: start: 20070914
  3. LEXAPRO [Concomitant]

REACTIONS (30)
  - ABASIA [None]
  - ANAEMIA [None]
  - ANXIETY [None]
  - ASTHENIA [None]
  - BLOOD ELECTROLYTES DECREASED [None]
  - BLOOD IRON DECREASED [None]
  - BREAST PAIN [None]
  - DEHYDRATION [None]
  - DEPRESSION [None]
  - DIARRHOEA [None]
  - DIZZINESS [None]
  - DRUG EFFECT DECREASED [None]
  - DRY MOUTH [None]
  - DRY SKIN [None]
  - DYSGEUSIA [None]
  - FALL [None]
  - FOOD CRAVING [None]
  - GASTRITIS [None]
  - HYPOTENSION [None]
  - INSOMNIA [None]
  - LOSS OF CONTROL OF LEGS [None]
  - MUSCLE SPASMS [None]
  - NERVOUSNESS [None]
  - PAIN [None]
  - PRURITUS GENERALISED [None]
  - RASH [None]
  - SKIN CHAPPED [None]
  - THYROID DISORDER [None]
  - TREMOR [None]
  - WEIGHT DECREASED [None]
